FAERS Safety Report 6478418-5 (Version None)
Quarter: 2009Q4

REPORT INFORMATION
  Report Type: 
  Country: None (occurrence: None)
  Receive Date: 20091207
  Receipt Date: 20091130
  Transmission Date: 20100525
  Serious: Yes (Death, Life-Threatening, Other)
  Sender: FDA-Public Use
  Company Number: PHHY2009FR52588

PATIENT
  Sex: Female

DRUGS (9)
  1. TAREG [Suspect]
     Dosage: 40 MG, QD
     Dates: start: 20091117, end: 20091118
  2. CORTICOSTEROIDS [Concomitant]
     Indication: MYOCARDITIS
     Dosage: 1 MG/KG/DAY
     Dates: start: 20091113
  3. ZANAMIVIR [Concomitant]
     Dosage: 250 MG, BID
     Route: 042
     Dates: start: 20091114, end: 20091117
  4. ASPIRIN [Concomitant]
  5. DOBUTAMINE HCL [Concomitant]
     Indication: CARDIAC INDEX
  6. DOPAMINE HCL [Concomitant]
     Indication: CARDIAC INDEX
  7. TIENAM [Concomitant]
  8. VANCOMYCIN [Concomitant]
  9. AMIKACINE ^ION^ [Concomitant]

REACTIONS (14)
  - ASPARTATE AMINOTRANSFERASE INCREASED [None]
  - BLOOD BILIRUBIN INCREASED [None]
  - BLOOD CREATININE INCREASED [None]
  - BLOOD LACTATE DEHYDROGENASE INCREASED [None]
  - CARDIOGENIC SHOCK [None]
  - CIRCULATORY COLLAPSE [None]
  - GASTRIC MUCOSAL LESION [None]
  - HAEMODYNAMIC INSTABILITY [None]
  - HAEMOGLOBIN DECREASED [None]
  - HYPOTENSION [None]
  - MYOCARDITIS [None]
  - RESPIRATORY DISTRESS [None]
  - SEPTIC SHOCK [None]
  - THROMBOTIC MICROANGIOPATHY [None]
